FAERS Safety Report 8162675-3 (Version None)
Quarter: 2012Q1

REPORT INFORMATION
  Report Type: 
  Country: None (occurrence: None)
  Receive Date: 20120224
  Receipt Date: 20120216
  Transmission Date: 20120608
  Serious: Yes (Other)
  Sender: FDA-Public Use
  Company Number: BR-JNJFOC-20120103028

PATIENT
  Age: 42 Year
  Sex: Female
  Weight: 72 kg

DRUGS (2)
  1. ORTHO EVRA [Suspect]
     Indication: CONTRACEPTION
     Route: 062
     Dates: start: 20110701, end: 20120109
  2. ORTHO EVRA [Suspect]
     Route: 062
     Dates: start: 20120120, end: 20120101

REACTIONS (8)
  - APPLICATION SITE PRURITUS [None]
  - APPLICATION SITE SWELLING [None]
  - APPLICATION SITE BURN [None]
  - VAGINAL HAEMORRHAGE [None]
  - APPLICATION SITE ERYTHEMA [None]
  - DRUG ADMINISTERED AT INAPPROPRIATE SITE [None]
  - APPLICATION SITE IRRITATION [None]
  - ANAEMIA [None]
